FAERS Safety Report 9393252 (Version 1)
Quarter: 2013Q3

REPORT INFORMATION
  Report Type: Spontaneous
  Country: TW (occurrence: TW)
  Receive Date: 20130710
  Receipt Date: 20130710
  Transmission Date: 20140515
  Serious: Yes (Other)
  Sender: FDA-Public Use
  Company Number: TW-MYLANLABS-2013S1014343

PATIENT
  Age: 19 Year
  Sex: Male

DRUGS (1)
  1. WARFARIN [Suspect]
     Route: 065

REACTIONS (1)
  - Calciphylaxis [Recovering/Resolving]
